FAERS Safety Report 4861445-9 (Version None)
Quarter: 2005Q4

REPORT INFORMATION
  Report Type: 
  Country: None (occurrence: None)
  Receive Date: 20051220
  Receipt Date: 20051212
  Transmission Date: 20060501
  Serious: Yes (Other)
  Sender: FDA-Public Use
  Company Number: PHEH2005US13420

PATIENT
  Age: 78 Year
  Sex: Female

DRUGS (1)
  1. FAMVIR [Suspect]
     Indication: HERPES ZOSTER
     Dosage: 500 MG, ONCE/SINGLE
     Route: 048
     Dates: start: 20051207, end: 20051207

REACTIONS (3)
  - HEART RATE INCREASED [None]
  - MIDDLE INSOMNIA [None]
  - TREMOR [None]
